FAERS Safety Report 9921371 (Version 1)
Quarter: 2014Q1

REPORT INFORMATION
  Report Type: Spontaneous
  Country: FR (occurrence: FR)
  Receive Date: 20140225
  Receipt Date: 20140225
  Transmission Date: 20141002
  Serious: Yes (Life-Threatening)
  Sender: FDA-Public Use
  Company Number: FR-JNJFOC-20140213759

PATIENT
  Age: 65 Year
  Sex: Female

DRUGS (8)
  1. SIMPONI [Suspect]
     Indication: PRODUCT USED FOR UNKNOWN INDICATION
     Route: 058
     Dates: start: 2013
  2. CORTANCYL [Suspect]
     Indication: PRODUCT USED FOR UNKNOWN INDICATION
     Route: 048
     Dates: start: 2005
  3. DUROGESIC [Concomitant]
     Route: 065
  4. ABSTRAL [Concomitant]
     Route: 065
  5. ARAVA [Concomitant]
     Route: 065
  6. ALLOPURINOL [Concomitant]
     Route: 065
  7. NEURONTIN [Concomitant]
     Route: 065
  8. AMOXICILLIN [Concomitant]
     Route: 065

REACTIONS (2)
  - Myocardial infarction [Recovering/Resolving]
  - Hypertension [Recovering/Resolving]
